FAERS Safety Report 8385280 (Version 3)
Quarter: 2013Q2

REPORT INFORMATION
  Report Type: Spontaneous
  Country: US (occurrence: US)
  Receive Date: 20120202
  Receipt Date: 20130425
  Transmission Date: 20140414
  Serious: Yes (Hospitalization, Other)
  Sender: FDA-Public Use
  Company Number: US-PFIZER INC-2012026387

PATIENT
  Age: 78 Year
  Sex: Female

DRUGS (8)
  1. DILANTIN [Suspect]
     Indication: CONVULSION
     Dosage: 500 MG, 2X/DAY
     Route: 048
     Dates: start: 20001225, end: 20001225
  2. DILANTIN [Suspect]
     Dosage: 400 MG, 1X/DAY, AT BED TIME
     Route: 048
     Dates: start: 20001226, end: 20010102
  3. DILANTIN [Suspect]
     Dosage: 300 MG, 1X/DAY, AT BED TIME
     Route: 048
     Dates: start: 20010102, end: 2001
  4. LOTENSIN [Concomitant]
     Indication: HYPERTENSION
     Dosage: 20 MG DAILY IN THE MORNING
     Route: 048
     Dates: start: 200101, end: 20010129
  5. DYAZIDE [Concomitant]
     Indication: HYPERTENSION
     Dosage: 37.5 MG DAILY IN THE MORNING
     Route: 048
     Dates: start: 200101, end: 20010129
  6. PLAVIX [Concomitant]
     Indication: CEREBROVASCULAR ACCIDENT
     Dosage: 75 MG DAILY IN THE MORNING
     Route: 048
     Dates: start: 20001227, end: 20010129
  7. VIOXX [Concomitant]
     Indication: ARTHRITIS
     Dosage: 25 MG EVERY MORNING
     Route: 048
     Dates: start: 20010109, end: 20010129
  8. TOPROL XL [Concomitant]
     Dosage: 100 MG, 1X/DAY
     Route: 048
     Dates: start: 20001223

REACTIONS (1)
  - Stevens-Johnson syndrome [Recovering/Resolving]
